FAERS Safety Report 18898295 (Version 1)
Quarter: 2021Q1

REPORT INFORMATION
  Report Type: Spontaneous
  Country: US (occurrence: US)
  Receive Date: 20210213
  Receipt Date: 20210213
  Transmission Date: 20210420
  Serious: Yes (Disabling)
  Sender: FDA-Public Use
  Company Number: None

PATIENT
  Age: 31 Year
  Sex: Female
  Weight: 60.75 kg

DRUGS (6)
  1. ALBUTEROL INHALER [Concomitant]
     Active Substance: ALBUTEROL
  2. BLACK SEED OIL [Concomitant]
  3. MONTELUKAST [Suspect]
     Active Substance: MONTELUKAST SODIUM
     Indication: ASTHMA
  4. ALBUTEROL SULFATE. [Concomitant]
     Active Substance: ALBUTEROL SULFATE
  5. ELDERBERRY [Concomitant]
     Active Substance: HERBALS
  6. SEA MOSS [Concomitant]

REACTIONS (12)
  - Palpitations [None]
  - Hypoaesthesia [None]
  - Headache [None]
  - Paraesthesia [None]
  - Suicidal ideation [None]
  - Neuralgia [None]
  - Insomnia [None]
  - Impaired work ability [None]
  - Anxiety [None]
  - Depression [None]
  - Panic attack [None]
  - Tremor [None]

NARRATIVE: CASE EVENT DATE: 20181001
